FAERS Safety Report 13763906 (Version 3)
Quarter: 2017Q3

REPORT INFORMATION
  Report Type: Spontaneous
  Country: US (occurrence: US)
  Receive Date: 20170718
  Receipt Date: 20170815
  Transmission Date: 20171127
  Serious: Yes (Other)
  Sender: FDA-Public Use
  Company Number: US-PFIZER INC-2017296283

PATIENT

DRUGS (7)
  1. XARELTO [Concomitant]
     Active Substance: RIVAROXABAN
     Dosage: 20 MG ONCE A DAY (1 QD)
  2. SERGEL [Concomitant]
     Dosage: 100 MG, UNK
  3. IBUPROFEN. [Concomitant]
     Active Substance: IBUPROFEN
  4. LIDOCAINE HCL [Suspect]
     Active Substance: LIDOCAINE HYDROCHLORIDE
     Dosage: UNK
  5. XARELTO [Concomitant]
     Active Substance: RIVAROXABAN
     Dosage: 15MG ONCE EVERY 12 HOURS (1 Q12H)
  6. ULTRAM [Concomitant]
     Active Substance: TRAMADOL HYDROCHLORIDE
     Dosage: 50 MG, AS NEEDED ONCE EVERY 6 HOURS (1 Q6H)
  7. LEVOTHYROXINE. [Concomitant]
     Active Substance: LEVOTHYROXINE
     Dosage: 75 MG ONCE A DAY IN THE AFTERNOON (1 QD PM)

REACTIONS (2)
  - Drug hypersensitivity [Unknown]
  - Obstructive airways disorder [Unknown]
